FAERS Safety Report 8422546-1 (Version None)
Quarter: 2012Q2

REPORT INFORMATION
  Report Type: 
  Country: None (occurrence: None)
  Receive Date: 20120608
  Receipt Date: 20120605
  Transmission Date: 20120825
  Serious: No
  Sender: FDA-Public Use
  Company Number: US-PFIZER INC-2012117660

PATIENT
  Sex: Male
  Weight: 44.444 kg

DRUGS (5)
  1. LISDEXAMFETAMINE DIMESYLATE [Concomitant]
     Indication: ATTENTION DEFICIT/HYPERACTIVITY DISORDER
     Dosage: 70 MG, DAILY
     Dates: start: 20050101
  2. CLARITIN [Concomitant]
     Indication: HYPERSENSITIVITY
     Dosage: 10 MG, DAILY
     Dates: start: 20080101
  3. LAMICTAL [Concomitant]
     Indication: MOOD SWINGS
     Dosage: 100 MG, DAILY
     Dates: start: 20100101
  4. PROTONIX [Concomitant]
     Indication: GASTROOESOPHAGEAL REFLUX DISEASE
     Dosage: UNK
     Dates: start: 20100101
  5. GENOTROPIN [Suspect]
     Indication: DWARFISM
     Dosage: 1.4 MG, DAILY
     Route: 058
     Dates: start: 20120307

REACTIONS (2)
  - SEVER'S DISEASE [None]
  - PAIN IN EXTREMITY [None]
